FAERS Safety Report 19565410 (Version 1)
Quarter: 2021Q3

REPORT INFORMATION
  Report Type: Report from Study
  Country: US (occurrence: US)
  Receive Date: 20210714
  Receipt Date: 20210714
  Transmission Date: 20211014
  Serious: Yes (Hospitalization)
  Sender: FDA-Public Use
  Company Number: US-BRISTOL-MYERS SQUIBB COMPANY-BMS-2021-066278

PATIENT
  Age: 62 Year
  Sex: Male
  Weight: 138 kg

DRUGS (2)
  1. IPILIMUMAB [Suspect]
     Active Substance: IPILIMUMAB
     Indication: RENAL CELL CARCINOMA
     Dosage: 138 MILLIGRAM
     Route: 065
     Dates: start: 20210507, end: 20210528
  2. NIVOLUMAB [Suspect]
     Active Substance: NIVOLUMAB
     Indication: RENAL CELL CARCINOMA
     Dosage: 413 MILLIGRAM
     Route: 065
     Dates: start: 20210507, end: 20210528

REACTIONS (5)
  - Haematuria [Recovered/Resolved with Sequelae]
  - Pyrexia [Recovered/Resolved with Sequelae]
  - Chills [Recovered/Resolved with Sequelae]
  - Cough [Recovered/Resolved with Sequelae]
  - Pneumonitis [Recovered/Resolved with Sequelae]

NARRATIVE: CASE EVENT DATE: 20210613
